FAERS Safety Report 14454035 (Version 4)
Quarter: 2019Q4

REPORT INFORMATION
  Report Type: Report from Study
  Country: GB (occurrence: GB)
  Receive Date: 20180129
  Receipt Date: 20191120
  Transmission Date: 20200122
  Serious: Yes (Hospitalization)
  Sender: FDA-Public Use
  Company Number: GB-BIOMARINAP-GB-2018-116853

PATIENT

DRUGS (1)
  1. NAGLAZYME [Suspect]
     Active Substance: GALSULFASE
     Indication: MUCOPOLYSACCHARIDOSIS VI
     Dosage: 1 MG/KG, QW
     Route: 042
     Dates: start: 20160608

REACTIONS (1)
  - Cervical cord compression [Recovered/Resolved]

NARRATIVE: CASE EVENT DATE: 20170805
